FAERS Safety Report 22160877 (Version 1)
Quarter: 2023Q1

REPORT INFORMATION
  Report Type: Spontaneous
  Country: US (occurrence: None)
  Receive Date: 20230330
  Receipt Date: 20230330
  Transmission Date: 20230418
  Serious: No
  Sender: FDA-Public Use
  Company Number: None

PATIENT
  Age: 59 Year
  Sex: Male
  Weight: 105.41 kg

DRUGS (9)
  1. ETOPOSIDE [Suspect]
     Active Substance: ETOPOSIDE
     Indication: Brain neoplasm malignant
     Dosage: OTHER FREQUENCY : 21DOF28DAYS;?
     Route: 048
     Dates: start: 202303
  2. AVASTIN [Concomitant]
  3. BACLOFEN [Concomitant]
  4. COMBIVENT [Concomitant]
  5. DEXAMETHASONE [Concomitant]
  6. LEVETIRACETAM [Concomitant]
  7. MULTIVITAMIN [Concomitant]
  8. ONDANSETRON [Concomitant]
  9. PROCHLORPERAZINE [Concomitant]

REACTIONS (2)
  - Therapy cessation [None]
  - Hospice care [None]
